FAERS Safety Report 4486202-7 (Version None)
Quarter: 2004Q4

REPORT INFORMATION
  Report Type: 
  Country: None (occurrence: None)
  Receive Date: 20041026
  Receipt Date: 20041016
  Transmission Date: 20050328
  Serious: Yes (Other)
  Sender: FDA-Public Use
  Company Number: DE-MERCK-0410DEU00513

PATIENT
  Age: 53 Year
  Sex: Female

DRUGS (7)
  1. VIOXX [Suspect]
     Indication: SYSTEMIC LUPUS ERYTHEMATOSUS
     Route: 048
     Dates: start: 20010601
  2. TRAMADOL HYDROCHLORIDE [Concomitant]
     Route: 048
  3. BETAHISTINE MESYLATE [Concomitant]
     Route: 065
  4. ATORVASTATIN CALCIUM [Concomitant]
     Route: 048
  5. CANDESARTAN CILEXETIL [Concomitant]
     Route: 048
  6. ASPIRIN [Concomitant]
     Route: 048
  7. HYDROXYCHLOROQUINE SULFATE [Concomitant]
     Route: 048

REACTIONS (4)
  - DEAFNESS [None]
  - MENIERE'S DISEASE [None]
  - SUDDEN HEARING LOSS [None]
  - TINNITUS [None]
